FAERS Safety Report 7604781-5 (Version None)
Quarter: 2011Q3

REPORT INFORMATION
  Report Type: 
  Country: None (occurrence: None)
  Receive Date: 20110712
  Receipt Date: 20110704
  Transmission Date: 20111222
  Serious: Yes (Other)
  Sender: FDA-Public Use
  Company Number: PHHY2011JP13946

PATIENT
  Sex: Male
  Weight: 57 kg

DRUGS (19)
  1. TASIGNA [Suspect]
     Dosage: 400 MG, UNK
     Route: 048
     Dates: start: 20110316, end: 20110318
  2. LEVOTHYROXINE SODIUM [Concomitant]
     Indication: HYPOTHYROIDISM
     Dosage: 75 UG, UNK
     Route: 048
  3. CARVEDILOL [Concomitant]
     Indication: ANGINA PECTORIS
     Dosage: 10 MG, UNK
     Route: 048
  4. CALCIUM POLYSTYRENE SULFONATE [Concomitant]
     Indication: RENAL IMPAIRMENT
     Dosage: 75 G, UNK
     Route: 048
  5. SPIRIVA [Concomitant]
     Indication: ASTHMA
     Dosage: 1 DF, UNK
  6. TASIGNA [Suspect]
     Dosage: 200 MG, UNK
     Route: 048
     Dates: start: 20110224, end: 20110305
  7. AMARYL [Concomitant]
     Indication: HYPERGLYCAEMIA
     Dosage: 0.5 MG, UNK
     Route: 048
     Dates: start: 20110316, end: 20110318
  8. MUCOSTA [Concomitant]
     Indication: GASTRITIS PROPHYLAXIS
     Dosage: 300 MG, UNK
     Route: 048
  9. BERIZYM [Concomitant]
     Dosage: 1.5 G, UNK
     Route: 048
  10. SIGMART [Concomitant]
     Indication: ANGINA PECTORIS
     Dosage: 15 MG, UNK
     Route: 048
  11. ATELEC [Concomitant]
     Indication: HYPERTENSION
     Dosage: 10 MG, UNK
     Route: 048
  12. TASIGNA [Suspect]
     Indication: CHRONIC MYELOID LEUKAEMIA
     Dosage: 800 MG, DAILY
     Route: 048
     Dates: start: 20110211, end: 20110218
  13. TASIGNA [Suspect]
     Dosage: 800 MG, UNK
     Route: 048
     Dates: start: 20110306, end: 20110315
  14. VOGLIBOSE [Concomitant]
     Indication: HYPERGLYCAEMIA
     Dosage: 0.6 MG, UNK
     Route: 048
     Dates: start: 20110301, end: 20110328
  15. ALLOZYM [Concomitant]
     Indication: HYPERURICAEMIA
     Dosage: 100 MG, UNK
     Route: 048
  16. PURSENNID [Concomitant]
     Indication: CONSTIPATION
     Dosage: 12 MG, UNK
     Route: 048
  17. FLUTICASONE PROPIONATE [Concomitant]
     Indication: ASTHMA
     Dosage: 2 DF, UNK
  18. MAGNESIUM SULFATE [Concomitant]
     Indication: CONSTIPATION
     Dosage: 1320 MG, UNK
     Route: 048
  19. IRBESARTAN [Concomitant]
     Indication: HYPERTENSION
     Dosage: 50 MG, UNK
     Route: 048

REACTIONS (7)
  - ELECTROCARDIOGRAM QT PROLONGED [None]
  - HYPERGLYCAEMIA [None]
  - ARRHYTHMIA [None]
  - CHEST DISCOMFORT [None]
  - VENTRICULAR EXTRASYSTOLES [None]
  - RENAL IMPAIRMENT [None]
  - CONCOMITANT DISEASE AGGRAVATED [None]
